FAERS Safety Report 15024557 (Version 1)
Quarter: 2018Q2

REPORT INFORMATION
  Report Type: Spontaneous
  Country: US (occurrence: US)
  Receive Date: 20180525
  Receipt Date: 20180525
  Transmission Date: 20180711
  Serious: Yes (Death)
  Sender: FDA-Public Use
  Company Number: None

PATIENT
  Sex: Male
  Weight: 90.26 kg

DRUGS (2)
  1. JACK RABBIT SUPPLEMENT [Suspect]
     Active Substance: DIETARY SUPPLEMENT
     Indication: ERECTILE DYSFUNCTION
     Route: 048
     Dates: start: 20180402
  2. SILDENAFIL (UNDECLARED INGREDIENT) [Suspect]
     Active Substance: SILDENAFIL

REACTIONS (5)
  - Arteriosclerosis [None]
  - Diabetes mellitus [None]
  - Acute myocardial infarction [None]
  - Hypertension [None]
  - Pulse absent [None]

NARRATIVE: CASE EVENT DATE: 20180402
